FAERS Safety Report 4596627-7 (Version None)
Quarter: 2005Q1

REPORT INFORMATION
  Report Type: 
  Country: None (occurrence: None)
  Receive Date: 20050228
  Receipt Date: 20040324
  Transmission Date: 20050727
  Serious: No
  Sender: FDA-Public Use
  Company Number: 7856

PATIENT
  Age: 58 Year
  Sex: Female

DRUGS (1)
  1. METHOTREXATE [Suspect]
     Indication: RHEUMATOID ARTHRITIS
     Dosage: 10 MG WEEKLY, IM
     Route: 030
     Dates: start: 20040215, end: 20040310

REACTIONS (3)
  - NAUSEA [None]
  - RESPIRATORY FAILURE [None]
  - SALIVARY HYPERSECRETION [None]
